FAERS Safety Report 25019692 (Version 1)
Quarter: 2025Q1

REPORT INFORMATION
  Report Type: Spontaneous
  Country: US (occurrence: US)
  Receive Date: 20250227
  Receipt Date: 20250227
  Transmission Date: 20250409
  Serious: No
  Sender: DR REDDYS
  Company Number: US-DRL-USA-USA/2025/02/002759

PATIENT
  Age: 51 Year
  Sex: Male

DRUGS (2)
  1. ZENATANE [Suspect]
     Active Substance: ISOTRETINOIN
     Indication: Acne
     Dosage: DRL BOX OF 30 (3X10)
     Route: 065
     Dates: start: 20241101
  2. ZENATANE [Suspect]
     Active Substance: ISOTRETINOIN
     Dosage: TWO WEEKS FROM 17-FEB-2025
     Route: 065

REACTIONS (6)
  - Myalgia [Unknown]
  - Arthralgia [Unknown]
  - Headache [Unknown]
  - Fatigue [Unknown]
  - Depressed mood [Unknown]
  - Rebound effect [Unknown]

NARRATIVE: CASE EVENT DATE: 20250210
